FAERS Safety Report 6202461-4 (Version None)
Quarter: 2009Q2

REPORT INFORMATION
  Report Type: 
  Country: None (occurrence: None)
  Receive Date: 20090526
  Receipt Date: 20090525
  Transmission Date: 20091009
  Serious: Yes (Other)
  Sender: FDA-Public Use
  Company Number: DE-PFIZER INC-2009187025

PATIENT
  Age: 44 Year

DRUGS (1)
  1. CLINDAMYCIN HCL [Suspect]
     Indication: PERIODONTITIS
     Dosage: 600 MG, 3X/DAY
     Dates: start: 20090201

REACTIONS (1)
  - PARAESTHESIA [None]
